FAERS Safety Report 8673776 (Version 3)
Quarter: 2013Q1

REPORT INFORMATION
  Report Type: Spontaneous
  Country: US (occurrence: US)
  Receive Date: 20120719
  Receipt Date: 20130109
  Transmission Date: 20140127
  Serious: Yes (Hospitalization, Other)
  Sender: FDA-Public Use
  Company Number: US-009507513-1207USA006149

PATIENT
  Age: 53 Year
  Sex: Female
  Weight: 77.32 kg

DRUGS (4)
  1. INVANZ [Suspect]
     Indication: CELLULITIS
     Dosage: 500 MG, QD
     Route: 042
     Dates: start: 20120625, end: 20120702
  2. INVANZ [Suspect]
     Indication: SKIN ULCER
  3. GLIPIZIDE [Concomitant]
     Route: 048
  4. METFORMIN [Concomitant]
     Route: 048

REACTIONS (6)
  - Dysarthria [Recovered/Resolved]
  - Mental status changes [Recovered/Resolved]
  - Drug hypersensitivity [Recovered/Resolved]
  - Nausea [Recovered/Resolved]
  - Vomiting [Recovered/Resolved]
  - Loss of consciousness [Recovered/Resolved]
